FAERS Safety Report 13737131 (Version 1)
Quarter: 2017Q3

REPORT INFORMATION
  Report Type: Report from Study
  Country: US (occurrence: US)
  Receive Date: 20170710
  Receipt Date: 20170710
  Transmission Date: 20171127
  Serious: No
  Sender: FDA-Public Use
  Company Number: US-RETROPHIN, INC.-2017RTN00019

PATIENT
  Sex: Male

DRUGS (1)
  1. CHOLBAM [Suspect]
     Active Substance: CHOLIC ACID
     Indication: ADRENOLEUKODYSTROPHY
     Dosage: 50 MG, 1X/DAY
     Dates: start: 20160608, end: 201704

REACTIONS (3)
  - Diarrhoea [Not Recovered/Not Resolved]
  - Irritable bowel syndrome [Unknown]
  - Gastrooesophageal reflux disease [Recovering/Resolving]

NARRATIVE: CASE EVENT DATE: 2017
